FAERS Safety Report 5216868-5 (Version None)
Quarter: 2007Q1

REPORT INFORMATION
  Report Type: 
  Country: None (occurrence: None)
  Receive Date: 20070119
  Receipt Date: 20070110
  Transmission Date: 20070707
  Serious: Yes (Hospitalization, Other)
  Sender: FDA-Public Use
  Company Number: MEDI-0005281

PATIENT
  Age: 50 Year
  Sex: Male
  Weight: 75.2971 kg

DRUGS (9)
  1. ETHYOL [Suspect]
     Indication: RADIOTHERAPY
     Dosage: 500 MG, 5 IN 5 D, SUBCUTANEOUS
     Route: 058
     Dates: start: 20061011, end: 20061019
  2. ETHYOL [Suspect]
     Indication: RADIOTHERAPY
     Dosage: 500 MG, 5 IN 5 D, SUBCUTANEOUS
     Route: 058
     Dates: start: 20061023, end: 20061023
  3. TYLENOL [Suspect]
     Indication: PYREXIA
  4. DIFLUCAN [Concomitant]
  5. ROXICET [Concomitant]
  6. ZOFRAN [Concomitant]
  7. CISPLATIN [Concomitant]
  8. RADIATION THERAPY [Concomitant]
  9. COUMADIN [Concomitant]

REACTIONS (19)
  - ALPHA-1 ANTI-TRYPSIN DEFICIENCY [None]
  - AUTOIMMUNE HEPATITIS [None]
  - BILIARY CIRRHOSIS [None]
  - CHILLS [None]
  - COLD TYPE HAEMOLYTIC ANAEMIA [None]
  - DECREASED APPETITE [None]
  - HAEMOCHROMATOSIS [None]
  - HAEMOLYSIS [None]
  - HEPATIC FAILURE [None]
  - HEPATO-LENTICULAR DEGENERATION [None]
  - HYPERBILIRUBINAEMIA [None]
  - LEUKOPENIA [None]
  - MUCOSAL INFLAMMATION [None]
  - NAUSEA [None]
  - NEUTROPENIA [None]
  - PYREXIA [None]
  - THROMBOCYTOPENIA [None]
  - VOMITING [None]
  - WEIGHT DECREASED [None]
